FAERS Safety Report 13329782 (Version 3)
Quarter: 2017Q1

REPORT INFORMATION
  Report Type: Spontaneous
  Country: US (occurrence: US)
  Receive Date: 20170313
  Receipt Date: 20170320
  Transmission Date: 20170428
  Serious: Yes (Death, Other)
  Sender: FDA-Public Use
  Company Number: US-JNJFOC-20170312373

PATIENT
  Age: 62 Year
  Sex: Female

DRUGS (1)
  1. XARELTO [Suspect]
     Active Substance: RIVAROXABAN
     Indication: PRODUCT USED FOR UNKNOWN INDICATION
     Route: 048
     Dates: start: 201309

REACTIONS (5)
  - Death [Fatal]
  - Haemoptysis [Unknown]
  - Oedema peripheral [Unknown]
  - Cerebrovascular accident [Unknown]
  - Anaemia [Unknown]

NARRATIVE: CASE EVENT DATE: 20130920
